FAERS Safety Report 13427805 (Version 1)
Quarter: 2017Q2

REPORT INFORMATION
  Report Type: Spontaneous
  Country: TR (occurrence: TR)
  Receive Date: 20170411
  Receipt Date: 20170411
  Transmission Date: 20170830
  Serious: Yes (Other)
  Sender: FDA-Public Use
  Company Number: TR-JNJFOC-20170408265

PATIENT
  Age: 52 Year
  Sex: Female

DRUGS (1)
  1. REMICADE [Suspect]
     Active Substance: INFLIXIMAB
     Indication: ANKYLOSING SPONDYLITIS
     Dosage: TOTAL 4 DOSES
     Route: 042
     Dates: start: 20160424, end: 20161118

REACTIONS (2)
  - Goitre [Unknown]
  - Psoriatic arthropathy [Not Recovered/Not Resolved]
